FAERS Safety Report 9782217 (Version 1)
Quarter: 2013Q4

REPORT INFORMATION
  Report Type: Spontaneous
  Country: US (occurrence: US)
  Receive Date: 20131226
  Receipt Date: 20131226
  Transmission Date: 20140711
  Serious: No
  Sender: FDA-Public Use
  Company Number: US-009507513-1312USA004921

PATIENT
  Age: 43 Year
  Sex: Male

DRUGS (12)
  1. CARBIDOPA (+) LEVODOPA [Suspect]
     Indication: PARKINSON^S DISEASE
     Dosage: 450 MG DAILY, IMMEDIATE RELEASE
     Route: 048
  2. CARBIDOPA (+) LEVODOPA [Suspect]
     Dosage: 200 MG DAILY, IMMEDIATE RELEASE
     Route: 048
  3. CARBIDOPA (+) LEVODOPA [Suspect]
     Dosage: 350 MG DAILY, IMMEDIATE RELEASE
     Route: 048
  4. CARBIDOPA (+) LEVODOPA [Suspect]
     Indication: PARKINSON^S DISEASE
     Dosage: 200 MG, HS
     Route: 048
  5. CARBIDOPA (+) LEVODOPA [Suspect]
     Dosage: 200 MG, HS
  6. CARBIDOPA (+) LEVODOPA [Suspect]
     Dosage: 150 MG, Q4H
  7. CLONAZEPAM [Concomitant]
     Indication: STEREOTYPY
     Dosage: 1 MG, HS
  8. CLONAZEPAM [Concomitant]
     Dosage: 1 MG, QPM
  9. RASAGILINE [Concomitant]
     Dosage: 1 MG, QD
  10. ESCITALOPRAM [Concomitant]
     Dosage: 10 MG, UNK
  11. ESCITALOPRAM [Concomitant]
     Dosage: 40 MG, UNK
  12. QUETIAPINE FUMARATE [Concomitant]
     Dosage: 25 MG, HS

REACTIONS (6)
  - Dysgraphia [Unknown]
  - Unevaluable event [Unknown]
  - Hyperhidrosis [Unknown]
  - Dyskinesia [Unknown]
  - Dystonia [Recovering/Resolving]
  - Dyskinesia [Recovering/Resolving]
